FAERS Safety Report 13237055 (Version 2)
Quarter: 2017Q1

REPORT INFORMATION
  Report Type: Report from Study
  Country: None (occurrence: US)
  Receive Date: 20170215
  Receipt Date: 20170324
  Transmission Date: 20170428
  Serious: Yes (Hospitalization, Other)
  Sender: FDA-Public Use
  Company Number: US-ABBVIE-17K-163-1867063-00

PATIENT
  Sex: Female
  Weight: 45.4 kg

DRUGS (2)
  1. HUMIRA [Suspect]
     Active Substance: ADALIMUMAB
     Route: 058
     Dates: start: 2015
  2. HUMIRA [Suspect]
     Active Substance: ADALIMUMAB
     Indication: CROHN^S DISEASE
     Route: 058
     Dates: start: 2007, end: 2015

REACTIONS (6)
  - Postoperative adhesion [Recovering/Resolving]
  - Colostomy [Recovering/Resolving]
  - Abdominal pain [Recovered/Resolved]
  - Intestinal dilatation [Recovered/Resolved]
  - Pneumonia legionella [Recovered/Resolved]
  - Abdominal operation [Unknown]

NARRATIVE: CASE EVENT DATE: 2015
